FAERS Safety Report 14575681 (Version 4)
Quarter: 2020Q1

REPORT INFORMATION
  Report Type: Spontaneous
  Country: US (occurrence: US)
  Receive Date: 20180227
  Receipt Date: 20200319
  Transmission Date: 20200409
  Serious: Yes (Other)
  Sender: FDA-Public Use
  Company Number: US-ALEXION PHARMACEUTICALS INC.-A201801798

PATIENT
  Age: 24 Year
  Sex: Female

DRUGS (4)
  1. SOLIRIS [Suspect]
     Active Substance: ECULIZUMAB
     Indication: ALLOIMMUNISATION
     Dosage: 1200 MG, SINGLE
     Route: 042
     Dates: start: 20150522, end: 20150522
  2. SOLIRIS [Suspect]
     Active Substance: ECULIZUMAB
     Indication: THROMBOCYTOPENIA
     Dosage: 1200 MG, SINGLE
     Route: 042
     Dates: start: 20150316, end: 20150316
  3. SOLIRIS [Suspect]
     Active Substance: ECULIZUMAB
     Indication: OFF LABEL USE
  4. SOLIRIS [Suspect]
     Active Substance: ECULIZUMAB
     Indication: REFRACTORINESS TO PLATELET TRANSFUSION

REACTIONS (2)
  - Aplastic anaemia [Unknown]
  - Off label use [Unknown]
